FAERS Safety Report 8137353-7 (Version None)
Quarter: 2012Q1

REPORT INFORMATION
  Report Type: 
  Country: None (occurrence: None)
  Receive Date: 20120103
  Receipt Date: 20111031
  Transmission Date: 20120608
  Serious: No
  Sender: FDA-Public Use
  Company Number: AE-2011-002322

PATIENT
  Age: 66 Year
  Sex: Female

DRUGS (4)
  1. INCIVEK [Suspect]
     Dosage: 2 TABS T.I.D., ORAL
     Route: 048
     Dates: start: 20111013
  2. RIBAVIRIN [Concomitant]
  3. LACTULOSE [Concomitant]
  4. PEGASYS [Concomitant]

REACTIONS (9)
  - MOOD SWINGS [None]
  - ERYTHEMA [None]
  - HEADACHE [None]
  - DIARRHOEA [None]
  - PRURITUS [None]
  - NAUSEA [None]
  - EAR DISCOMFORT [None]
  - DRY SKIN [None]
  - VISION BLURRED [None]
